FAERS Safety Report 5026567-0 (Version None)
Quarter: 2006Q2

REPORT INFORMATION
  Report Type: 
  Country: None (occurrence: None)
  Receive Date: 20060615
  Receipt Date: 20051213
  Transmission Date: 20061013
  Serious: Yes (Hospitalization)
  Sender: FDA-Public Use
  Company Number: AU-ROCHE-428231

PATIENT
  Age: 61 Year
  Sex: Male
  Weight: 80 kg

DRUGS (9)
  1. CAPECITABINE [Suspect]
     Dosage: TWO SEPERATE DOSES, ONE OF 1500 MG AND ANOTHER OF 1000 MG GIVING A TOTAL DAILY DOSE OF 2500 MG. PRO+
     Route: 048
     Dates: start: 20051024
  2. AVASTIN [Suspect]
     Dosage: AS PER PROTOCOL
     Route: 042
     Dates: start: 20051024
  3. MITOMYCIN [Suspect]
     Dosage: AS PER PROTOCOL: MAXIMUM DOSE 14 MG, MAXIMUM 4 TREATMENTS
     Route: 065
     Dates: start: 20051024
  4. PANTOPRAZOLE [Concomitant]
     Route: 048
     Dates: start: 20051212
  5. OXYCONTIN [Concomitant]
     Route: 048
     Dates: start: 20051213
  6. AMITRIPTYLINE HCL [Concomitant]
     Route: 048
     Dates: start: 20051212
  7. ACETAMINOPHEN [Concomitant]
     Route: 048
     Dates: start: 20051212
  8. FLUCLOXACILLIN [Concomitant]
     Route: 048
     Dates: start: 20051212, end: 20051218
  9. COLOXYL WITH SENNA [Concomitant]
     Route: 048
     Dates: start: 20051212

REACTIONS (1)
  - EXTRAVASATION [None]
